FAERS Safety Report 22277831 (Version 2)
Quarter: 2023Q2

REPORT INFORMATION
  Report Type: Report from Study
  Country: US (occurrence: US)
  Receive Date: 20230503
  Receipt Date: 20230627
  Transmission Date: 20230722
  Serious: Yes (Hospitalization, Other)
  Sender: FDA-Public Use
  Company Number: US-ABBVIE-4287968

PATIENT
  Sex: Female

DRUGS (6)
  1. IMBRUVICA [Suspect]
     Active Substance: IBRUTINIB
     Indication: Mantle cell lymphoma
     Dosage: STOP DATE DEC 2022
     Route: 048
     Dates: start: 20221202
  2. IMBRUVICA [Suspect]
     Active Substance: IBRUTINIB
     Indication: Mantle cell lymphoma
     Route: 048
     Dates: start: 20221210
  3. RITUXIMAB [Concomitant]
     Active Substance: RITUXIMAB
     Indication: Product used for unknown indication
  4. METHOTREXATE [Concomitant]
     Active Substance: METHOTREXATE
     Indication: Product used for unknown indication
  5. CYTARABINE [Concomitant]
     Active Substance: CYTARABINE
     Indication: Product used for unknown indication
     Dosage: CYTARABINE INJECTION IN BACK
  6. BRUKINSA [Concomitant]
     Active Substance: ZANUBRUTINIB
     Indication: Product used for unknown indication

REACTIONS (21)
  - Hospitalisation [Unknown]
  - Lumbar puncture abnormal [Unknown]
  - Dry skin [Unknown]
  - Epistaxis [Unknown]
  - Intentional product misuse [Unknown]
  - Mantle cell lymphoma [Unknown]
  - Procedural complication [Unknown]
  - Rash [Recovered/Resolved]
  - Oedema [Unknown]
  - Rash [Unknown]
  - Skin laceration [Unknown]
  - White blood cell count decreased [Unknown]
  - Constipation [Unknown]
  - Impaired healing [Unknown]
  - Skin disorder [Unknown]
  - Sensitive skin [Unknown]
  - Arthralgia [Unknown]
  - Erythema [Unknown]
  - Insomnia [Unknown]
  - Increased tendency to bruise [Unknown]
  - Skin haemorrhage [Unknown]
